FAERS Safety Report 9277943 (Version 3)
Quarter: 2013Q3

REPORT INFORMATION
  Report Type: Spontaneous
  Country: US (occurrence: US)
  Receive Date: 20130508
  Receipt Date: 20130702
  Transmission Date: 20140515
  Serious: No
  Sender: FDA-Public Use
  Company Number: US-BIOGENIDEC-2013BI040829

PATIENT
  Age: 64 Year
  Sex: Female

DRUGS (1)
  1. TYSABRI [Suspect]
     Indication: MULTIPLE SCLEROSIS
     Route: 042
     Dates: start: 20121129

REACTIONS (9)
  - Cystitis [Unknown]
  - Muscle spasms [Unknown]
  - Knee operation [Not Recovered/Not Resolved]
  - Arthropathy [Unknown]
  - Fall [Recovered/Resolved]
  - Excoriation [Recovered/Resolved]
  - Knee arthroplasty [Unknown]
  - Osteoarthritis [Unknown]
  - Arthralgia [Unknown]
